FAERS Safety Report 21945352 (Version 9)
Quarter: 2024Q1

REPORT INFORMATION
  Report Type: Spontaneous
  Country: US (occurrence: US)
  Receive Date: 20230202
  Receipt Date: 20240206
  Transmission Date: 20240410
  Serious: Yes (Other)
  Sender: FDA-Public Use
  Company Number: US-PFIZER INC-PV202300017893

PATIENT
  Age: 73 Year
  Sex: Female

DRUGS (5)
  1. SOMAVERT [Suspect]
     Active Substance: PEGVISOMANT
     Indication: Acromegaly
     Dosage: 40 MG, WEEKLY
     Route: 058
     Dates: start: 2019
  2. SOMAVERT [Suspect]
     Active Substance: PEGVISOMANT
     Dosage: 20 MG 2 TIMES A WEEK
     Route: 058
     Dates: start: 20230125
  3. SOMAVERT [Suspect]
     Active Substance: PEGVISOMANT
     Dosage: 30 MG,4 TIMES A WEEK
     Route: 058
     Dates: start: 20230125
  4. SOMAVERT [Suspect]
     Active Substance: PEGVISOMANT
     Dosage: 20 MG, DAILY, ROUTE: UNDER THE SKIN
     Route: 058
     Dates: start: 202307
  5. SOMATULINE DEPOT [Suspect]
     Active Substance: LANREOTIDE ACETATE
     Dosage: UNK

REACTIONS (8)
  - Localised infection [Recovered/Resolved]
  - Hip surgery [Unknown]
  - Off label use [Unknown]
  - Dizziness [Unknown]
  - Blood glucose decreased [Unknown]
  - Hypotension [Unknown]
  - Insulin-like growth factor abnormal [Unknown]
  - Wound infection [Recovered/Resolved]

NARRATIVE: CASE EVENT DATE: 20190101
